FAERS Safety Report 5323119-X (Version None)
Quarter: 2007Q2

REPORT INFORMATION
  Report Type: 
  Country: None (occurrence: None)
  Receive Date: 20070220
  Receipt Date: 20061128
  Transmission Date: 20071010
  Serious: No
  Sender: FDA-Public Use
  Company Number: WAES 0611USA07248

PATIENT
  Age: 79 Year
  Sex: Male

DRUGS (8)
  1. JANUVIA [Suspect]
     Indication: DIABETES MELLITUS NON-INSULIN-DEPENDENT
     Dosage: 100 MG/DAILY/PO
     Route: 048
     Dates: start: 20061117
  2. DIGITEX [Concomitant]
  3. PLAVIX [Concomitant]
  4. UNIVASC [Concomitant]
  5. METFORMIN HCL [Concomitant]
  6. NAPROXEN [Concomitant]
  7. SOTALOL HYDROCHLORIDE [Concomitant]
  8. WARFARIN SODIUM [Concomitant]

REACTIONS (1)
  - DRUG INEFFECTIVE [None]
